FAERS Safety Report 5210357-X (Version None)
Quarter: 2007Q1

REPORT INFORMATION
  Report Type: 
  Country: None (occurrence: None)
  Receive Date: 20070117
  Receipt Date: 20070103
  Transmission Date: 20070707
  Serious: Yes (Other)
  Sender: FDA-Public Use
  Company Number: HQWYE358103JAN07

PATIENT
  Age: 70 Year
  Sex: Male

DRUGS (1)
  1. ENBREL [Suspect]
     Indication: PSORIATIC ARTHROPATHY

REACTIONS (4)
  - LUPUS NEPHRITIS [None]
  - PERICARDITIS [None]
  - PLEURISY [None]
  - SYSTEMIC LUPUS ERYTHEMATOSUS [None]
